FAERS Safety Report 14530780 (Version 3)
Quarter: 2018Q1

REPORT INFORMATION
  Report Type: Report from Study
  Country: None (occurrence: TW)
  Receive Date: 20180214
  Receipt Date: 20180322
  Transmission Date: 20180509
  Serious: Yes (Hospitalization)
  Sender: FDA-Public Use
  Company Number: TW-ABBVIE-18K-153-2255188-00

PATIENT
  Age: 66 Year
  Sex: Female
  Weight: 50 kg

DRUGS (1)
  1. HUMIRA [Suspect]
     Active Substance: ADALIMUMAB
     Indication: RHEUMATOID ARTHRITIS
     Route: 058
     Dates: start: 20160107, end: 20180118

REACTIONS (4)
  - Vomiting [Unknown]
  - Decreased appetite [Unknown]
  - Dyspepsia [Unknown]
  - Colon cancer metastatic [Unknown]

NARRATIVE: CASE EVENT DATE: 20180208
